FAERS Safety Report 17534616 (Version 2)
Quarter: 2020Q3

REPORT INFORMATION
  Report Type: Report from Study
  Country: BE (occurrence: BE)
  Receive Date: 20200312
  Receipt Date: 20200904
  Transmission Date: 20201102
  Serious: Yes (Other)
  Sender: FDA-Public Use
  Company Number: BE-MYLANLABS-2020M1026261

PATIENT
  Age: 54 Year
  Sex: Male

DRUGS (4)
  1. PACLITAXEL. [Suspect]
     Active Substance: PACLITAXEL
     Indication: SALIVARY GLAND CANCER
     Dosage: 339 MILLIGRAM, Q21D
     Route: 042
     Dates: start: 20170628, end: 20171011
  2. BICALUTAMIDE. [Suspect]
     Active Substance: BICALUTAMIDE
     Indication: SALIVARY GLAND CANCER
     Dosage: 50 MILLIGRAM, QD
     Route: 048
     Dates: start: 20180704, end: 20200128
  3. TRIPTORELIN [Suspect]
     Active Substance: TRIPTORELIN
     Indication: SALIVARY GLAND CANCER
     Dosage: 3.75 MILLIGRAM, 28D CYCLE
     Route: 030
     Dates: start: 20180711, end: 20200122
  4. CARBOPLATIN. [Suspect]
     Active Substance: CARBOPLATIN
     Indication: SALIVARY GLAND CANCER
     Dosage: 600 MILLIGRAM, Q21D
     Route: 042
     Dates: start: 20170628, end: 20171011

REACTIONS (1)
  - Second primary malignancy [Not Recovered/Not Resolved]

NARRATIVE: CASE EVENT DATE: 20200128
